FAERS Safety Report 12084957 (Version 5)
Quarter: 2016Q4

REPORT INFORMATION
  Report Type: Report from Study
  Country: US (occurrence: US)
  Receive Date: 20160217
  Receipt Date: 20161119
  Transmission Date: 20170206
  Serious: No
  Sender: FDA-Public Use
  Company Number: US-AMGEN-USASP2016017529

PATIENT
  Age: 27 Year
  Sex: Female

DRUGS (1)
  1. ENBREL [Suspect]
     Active Substance: ETANERCEPT
     Indication: RHEUMATOID ARTHRITIS
     Dosage: 50 MG, QWK
     Route: 065
     Dates: start: 20160121

REACTIONS (15)
  - Headache [Unknown]
  - Injection site pruritus [Unknown]
  - Nausea [Unknown]
  - Device leakage [Unknown]
  - Pain in extremity [Unknown]
  - Injection site erythema [Unknown]
  - Drug dose omission [Unknown]
  - Injection site pain [Unknown]
  - Device issue [Unknown]
  - Memory impairment [Unknown]
  - Injection site swelling [Unknown]
  - Tremor [Unknown]
  - Muscle spasms [Unknown]
  - Mobility decreased [Unknown]
  - Injection site haemorrhage [Unknown]

NARRATIVE: CASE EVENT DATE: 201601
